FAERS Safety Report 15840802 (Version 1)
Quarter: 2019Q1

REPORT INFORMATION
  Report Type: Spontaneous
  Country: US (occurrence: US)
  Receive Date: 20190118
  Receipt Date: 20190118
  Transmission Date: 20190417
  Serious: No
  Sender: FDA-Public Use
  Company Number: US-JNJFOC-20181235463

PATIENT
  Age: 56 Year
  Sex: Female

DRUGS (15)
  1. ACETAMINOPHEN. [Suspect]
     Active Substance: ACETAMINOPHEN
     Indication: PROPHYLAXIS
     Dosage: ONCE AT THE TIME OF INTERVENTION
     Route: 048
     Dates: start: 20160912
  2. ACETAMINOPHEN. [Suspect]
     Active Substance: ACETAMINOPHEN
     Indication: PROPHYLAXIS
     Dosage: ONCE AT THE TIME OF INTERVENTION
     Route: 048
     Dates: start: 20170605
  3. BENADRYL [Suspect]
     Active Substance: DIPHENHYDRAMINE HYDROCHLORIDE
     Indication: PROPHYLAXIS
     Dosage: ONCE (ONE TIME INTERVENTION)
     Route: 048
     Dates: start: 20160912
  4. ACETAMINOPHEN. [Suspect]
     Active Substance: ACETAMINOPHEN
     Indication: PROPHYLAXIS
     Dosage: ONCE AT THE TIME OF INTERVENTION
     Route: 048
     Dates: start: 20161024
  5. BENADRYL [Suspect]
     Active Substance: DIPHENHYDRAMINE HYDROCHLORIDE
     Indication: PROPHYLAXIS
     Dosage: ONCE (ONE TIME INTERVENTION)
     Route: 048
     Dates: start: 20160829
  6. ACETAMINOPHEN. [Suspect]
     Active Substance: ACETAMINOPHEN
     Indication: PROPHYLAXIS
     Dosage: ONCE AT THE TIME OF INTERVENTION
     Route: 048
     Dates: start: 20171120
  7. BENADRYL [Suspect]
     Active Substance: DIPHENHYDRAMINE HYDROCHLORIDE
     Indication: PROPHYLAXIS
     Dosage: ONCE (ONE TIME INTERVENTION)
     Route: 048
     Dates: start: 20161219
  8. ACETAMINOPHEN. [Suspect]
     Active Substance: ACETAMINOPHEN
     Indication: PROPHYLAXIS
     Dosage: ONCE (ONE TIME INTERVENTION)
     Route: 048
     Dates: start: 20160829
  9. ACETAMINOPHEN. [Suspect]
     Active Substance: ACETAMINOPHEN
     Indication: PROPHYLAXIS
     Dosage: ONCE AT THE TIME OF INTERVENTION
     Route: 048
     Dates: start: 20170410
  10. ACETAMINOPHEN. [Suspect]
     Active Substance: ACETAMINOPHEN
     Indication: PROPHYLAXIS
     Dosage: ONCE AT THE TIME OF INTERVENTION
     Route: 048
     Dates: start: 20181210
  11. ACETAMINOPHEN. [Suspect]
     Active Substance: ACETAMINOPHEN
     Indication: PROPHYLAXIS
     Dosage: ONCE AT THE TIME OF INTERVENTION
     Route: 048
     Dates: start: 20180810
  12. ACETAMINOPHEN. [Suspect]
     Active Substance: ACETAMINOPHEN
     Indication: PROPHYLAXIS
     Dosage: ONCE AT THE TIME OF INTERVENTION
     Route: 048
     Dates: start: 20170925
  13. ACETAMINOPHEN. [Suspect]
     Active Substance: ACETAMINOPHEN
     Indication: PROPHYLAXIS
     Dosage: ONCE AT THE TIME OF INTERVENTION
     Route: 048
     Dates: start: 20161219
  14. ACETAMINOPHEN. [Suspect]
     Active Substance: ACETAMINOPHEN
     Indication: PROPHYLAXIS
     Dosage: ONCE AT THE TIME OF INTERVENTION
     Route: 048
     Dates: start: 20170213
  15. BENADRYL [Suspect]
     Active Substance: DIPHENHYDRAMINE HYDROCHLORIDE
     Indication: PROPHYLAXIS
     Dosage: ONCE (ONE TIME INTERVENTION)
     Route: 048
     Dates: start: 20161024

REACTIONS (2)
  - Product use in unapproved indication [Unknown]
  - Off label use [Unknown]

NARRATIVE: CASE EVENT DATE: 20160829
